FAERS Safety Report 4573785-1 (Version None)
Quarter: 2005Q1

REPORT INFORMATION
  Report Type: 
  Country: None (occurrence: None)
  Receive Date: 20050203
  Receipt Date: 20050121
  Transmission Date: 20050727
  Serious: Yes (Life-Threatening, Hospitalization)
  Sender: FDA-Public Use
  Company Number: HQWYE798024JAN05

PATIENT
  Age: 64 Year
  Sex: Female
  Weight: 68.1 kg

DRUGS (1)
  1. PREMARIN [Suspect]
     Indication: MENOPAUSAL SYMPTOMS
     Dosage: 0.625MG DAILY, ORAL
     Route: 048
     Dates: start: 19850101, end: 20050115

REACTIONS (2)
  - BRAIN NEOPLASM BENIGN [None]
  - PULMONARY EMBOLISM [None]
